FAERS Safety Report 14329624 (Version 2)
Quarter: 2018Q1

REPORT INFORMATION
  Report Type: Spontaneous
  Country: US (occurrence: US)
  Receive Date: 20171227
  Receipt Date: 20180119
  Transmission Date: 20180509
  Serious: Yes (Other)
  Sender: FDA-Public Use
  Company Number: US-UCBSA-2017047185

PATIENT
  Age: 38 Year
  Sex: Female

DRUGS (3)
  1. NITROFURANTOIN. [Concomitant]
     Active Substance: NITROFURANTOIN
     Indication: URINARY TRACT INFECTION
     Dosage: UNKNOWN DOSE
  2. CIMZIA [Suspect]
     Active Substance: CERTOLIZUMAB PEGOL
     Indication: CROHN^S DISEASE
     Dosage: 200 MG, EV 2 WEEKS(QOW)
     Route: 058
     Dates: start: 201707
  3. DOCUSATE SODIUM. [Concomitant]
     Active Substance: DOCUSATE SODIUM
     Indication: URINARY TRACT INFECTION
     Dosage: UNKNOWN DOSE

REACTIONS (11)
  - Urinary tract infection [Unknown]
  - Sinus congestion [Unknown]
  - Pyrexia [Unknown]
  - Gastroenteritis viral [Not Recovered/Not Resolved]
  - Wrist fracture [Not Recovered/Not Resolved]
  - Concussion [Not Recovered/Not Resolved]
  - Laryngitis [Unknown]
  - Pharyngitis [Unknown]
  - Nasopharyngitis [Unknown]
  - Upper limb fracture [Unknown]
  - Fall [Not Recovered/Not Resolved]

NARRATIVE: CASE EVENT DATE: 2017
